FAERS Safety Report 24903450 (Version 1)
Quarter: 2025Q1

REPORT INFORMATION
  Report Type: Spontaneous
  Country: US (occurrence: US)
  Receive Date: 20250130
  Receipt Date: 20250130
  Transmission Date: 20250409
  Serious: No
  Sender: AMGEN
  Company Number: US-AMGEN-USASP2025014492

PATIENT

DRUGS (1)
  1. TEPEZZA [Suspect]
     Active Substance: TEPROTUMUMAB-TRBW
     Indication: Product used for unknown indication
     Route: 065
     Dates: start: 2023, end: 2024

REACTIONS (6)
  - Blood glucose increased [Unknown]
  - Tinnitus [Unknown]
  - Muscle spasms [Unknown]
  - Abdominal discomfort [Unknown]
  - Hair growth abnormal [Unknown]
  - Diplopia [Recovered/Resolved]
